FAERS Safety Report 7459886-9 (Version None)
Quarter: 2011Q2

REPORT INFORMATION
  Report Type: 
  Country: None (occurrence: None)
  Receive Date: 20110505
  Receipt Date: 20110426
  Transmission Date: 20111010
  Serious: Yes (Hospitalization, Other)
  Sender: FDA-Public Use
  Company Number: PL-ACTELION-A-CH2011-47789

PATIENT
  Sex: Male
  Weight: 66 kg

DRUGS (9)
  1. FUROSEMID [Concomitant]
  2. SINTROM [Suspect]
  3. TRACLEER [Suspect]
     Indication: PULMONARY ARTERIAL HYPERTENSION
     Dosage: 125 MG, BID
     Route: 048
     Dates: start: 20100701, end: 20110225
  4. TRACLEER [Suspect]
     Dosage: 62.5 MG, BID
     Route: 048
     Dates: start: 20100621, end: 20100701
  5. NEBIVOLOL HCL [Concomitant]
  6. SPIRONOL [Concomitant]
  7. ALFADIOL [Concomitant]
  8. LETROX [Concomitant]
  9. MILURIT [Concomitant]

REACTIONS (5)
  - ALANINE AMINOTRANSFERASE INCREASED [None]
  - ASPARTATE AMINOTRANSFERASE INCREASED [None]
  - BLOOD BILIRUBIN INCREASED [None]
  - HEPATIC ENZYME ABNORMAL [None]
  - JAUNDICE [None]
